FAERS Safety Report 16706148 (Version 3)
Quarter: 2019Q4

REPORT INFORMATION
  Report Type: Spontaneous
  Country: US (occurrence: US)
  Receive Date: 20190815
  Receipt Date: 20191127
  Transmission Date: 20200122
  Serious: Yes (Death, Hospitalization)
  Sender: FDA-Public Use
  Company Number: US-LEXICON PHARMACEUTICALS, INC-19-1606-00783

PATIENT
  Age: 64 Year
  Sex: Male

DRUGS (9)
  1. MIRTAZAPINE. [Concomitant]
     Active Substance: MIRTAZAPINE
  2. HYDROMORPHONE [Concomitant]
     Active Substance: HYDROMORPHONE
  3. PROCHLORPERAZINE. [Concomitant]
     Active Substance: PROCHLORPERAZINE
  4. RIFAXIMIN. [Concomitant]
     Active Substance: RIFAXIMIN
  5. MIDODRINE [Concomitant]
     Active Substance: MIDODRINE
  6. LOPERAMIDE [Concomitant]
     Active Substance: LOPERAMIDE
  7. LEXAPRO [Concomitant]
     Active Substance: ESCITALOPRAM OXALATE
  8. XERMELO [Suspect]
     Active Substance: TELOTRISTAT ETHYL
     Indication: CARCINOID SYNDROME
     Route: 048
     Dates: start: 20190511
  9. OCTREOTIDE. [Concomitant]
     Active Substance: OCTREOTIDE

REACTIONS (6)
  - Constipation [Unknown]
  - Hospitalisation [Unknown]
  - Death [Fatal]
  - Malaise [Unknown]
  - Nausea [Unknown]
  - Abdominal pain [Unknown]

NARRATIVE: CASE EVENT DATE: 201909
